FAERS Safety Report 9618931 (Version 1)
Quarter: 2013Q4

REPORT INFORMATION
  Report Type: Spontaneous
  Country: US (occurrence: US)
  Receive Date: 20131014
  Receipt Date: 20131014
  Transmission Date: 20140711
  Serious: No
  Sender: FDA-Public Use
  Company Number: US-009507513-1310USA006018

PATIENT
  Age: 16 Year
  Sex: Female
  Weight: 61.22 kg

DRUGS (2)
  1. CLARITIN [Suspect]
     Indication: SEASONAL ALLERGY
     Dosage: 30 MG, ONCE
     Route: 048
     Dates: start: 20131003
  2. CLARITIN [Suspect]
     Dosage: 10 MG, UNKNOWN
     Route: 048

REACTIONS (2)
  - Overdose [Unknown]
  - Drug ineffective [Unknown]
